FAERS Safety Report 6884836-3 (Version None)
Quarter: 2010Q3

REPORT INFORMATION
  Report Type: 
  Country: None (occurrence: None)
  Receive Date: 20100729
  Receipt Date: 20100726
  Transmission Date: 20110219
  Serious: Yes (Life-Threatening, Hospitalization)
  Sender: FDA-Public Use
  Company Number: US-GILEAD-2010-0029731

PATIENT
  Sex: Male
  Weight: 102.79 kg

DRUGS (2)
  1. AMBRISENTAN [Suspect]
     Indication: IDIOPATHIC PULMONARY FIBROSIS
     Route: 048
     Dates: start: 20091021, end: 20100614
  2. OXYGEN [Concomitant]

REACTIONS (2)
  - IDIOPATHIC PULMONARY FIBROSIS [None]
  - SEPSIS [None]
